FAERS Safety Report 16838578 (Version 1)
Quarter: 2019Q4

REPORT INFORMATION
  Report Type: Spontaneous
  Country: US (occurrence: US)
  Receive Date: 20190920
  Receipt Date: 20190920
  Transmission Date: 20200122
  Serious: Yes (Hospitalization)
  Sender: FDA-Public Use
  Company Number: None

PATIENT
  Age: 58 Year
  Sex: Female

DRUGS (9)
  1. CEPHALEXIN. [Concomitant]
     Active Substance: CEPHALEXIN
     Dates: start: 20190910
  2. LOSARTAN POT [Concomitant]
     Active Substance: LOSARTAN POTASSIUM
     Dates: start: 20180709
  3. FUROSEMIDE. [Concomitant]
     Active Substance: FUROSEMIDE
     Dates: start: 20190202
  4. MELOXICAM. [Concomitant]
     Active Substance: MELOXICAM
     Dates: start: 20190408
  5. METFORMIN [Concomitant]
     Active Substance: METFORMIN HYDROCHLORIDE
     Dates: start: 20190411
  6. SERTRALINE [Concomitant]
     Active Substance: SERTRALINE HYDROCHLORIDE
     Dates: start: 20190408
  7. HUMIRA [Suspect]
     Active Substance: ADALIMUMAB
     Indication: RHEUMATOID ARTHRITIS
     Dosage: ?          OTHER FREQUENCY:EVERY OTHER WEEK;?
     Route: 058
     Dates: start: 20171007
  8. LOVASTATIN. [Concomitant]
     Active Substance: LOVASTATIN
     Dates: start: 20190920
  9. PIOGLITAZONE. [Concomitant]
     Active Substance: PIOGLITAZONE
     Dates: start: 20190411

REACTIONS (3)
  - Postoperative wound infection [None]
  - Depression [None]
  - Impaired healing [None]

NARRATIVE: CASE EVENT DATE: 20190830
